FAERS Safety Report 5979612-X (Version None)
Quarter: 2008Q4

REPORT INFORMATION
  Report Type: 
  Country: None (occurrence: None)
  Receive Date: 20081204
  Receipt Date: 20081124
  Transmission Date: 20090506
  Serious: Yes (Disabling)
  Sender: FDA-Public Use
  Company Number: IT-WATSON-2008-06973

PATIENT
  Age: 75 Year
  Sex: Female

DRUGS (1)
  1. GENTAMICIN SULFATE (WATSON LABORATORIES) [Suspect]
     Indication: ANTIBIOTIC PROPHYLAXIS
     Dosage: 0.2 MG SINGLE
     Route: 057

REACTIONS (2)
  - EYE OPERATION COMPLICATION [None]
  - MACULAR ISCHAEMIA [None]
